FAERS Safety Report 8610263-4 (Version None)
Quarter: 2012Q3

REPORT INFORMATION
  Report Type: 
  Country: None (occurrence: None)
  Receive Date: 20120810
  Receipt Date: 20120810
  Transmission Date: 20120928
  Serious: Yes (Death)
  Sender: FDA-Public Use
  Company Number: None

PATIENT

DRUGS (1)
  1. LUCENTIS [Suspect]
     Indication: RETINAL VEIN OCCLUSION
     Dosage: ONE EVERY FOUR WEEKS INTRAOCULAR
     Route: 031
     Dates: start: 20111230, end: 20120402

REACTIONS (1)
  - DEATH [None]
